FAERS Safety Report 16006228 (Version 1)
Quarter: 2019Q1

REPORT INFORMATION
  Report Type: Report from Study
  Country: None (occurrence: RO)
  Receive Date: 20190226
  Receipt Date: 20190226
  Transmission Date: 20190418
  Serious: Yes (Hospitalization)
  Sender: FDA-Public Use
  Company Number: RO-ABBVIE-19S-135-2679793-00

PATIENT
  Age: 47 Year
  Sex: Female

DRUGS (3)
  1. MADOPAR HBS [Concomitant]
     Active Substance: BENSERAZIDE HYDROCHLORIDE\LEVODOPA
     Indication: PARKINSON^S DISEASE
     Route: 048
  2. XANAX [Concomitant]
     Active Substance: ALPRAZOLAM
     Indication: PRODUCT USED FOR UNKNOWN INDICATION
     Route: 048
  3. DUODOPA [Suspect]
     Active Substance: CARBIDOPA\LEVODOPA
     Indication: PARKINSON^S DISEASE
     Dosage: DM=3.00 DC=3.10 ED=1.20 NRED=2; DMN=0.00 DCN=0.00  EDN=0.00 NREDN=0
     Route: 050
     Dates: start: 20140714

REACTIONS (1)
  - Hysterosalpingo-oophorectomy [Recovering/Resolving]

NARRATIVE: CASE EVENT DATE: 20190221
